FAERS Safety Report 20698959 (Version 1)
Quarter: 2022Q2

REPORT INFORMATION
  Report Type: Report from Study
  Country: CZ (occurrence: CZ)
  Receive Date: 20220412
  Receipt Date: 20220412
  Transmission Date: 20220721
  Serious: Yes (Other)
  Sender: FDA-Public Use
  Company Number: CZ-ROCHE-3042184

PATIENT
  Age: 11 Year
  Sex: Male

DRUGS (42)
  1. IBUPROFEN [Suspect]
     Active Substance: IBUPROFEN
     Indication: Prophylaxis against transplant rejection
     Dosage: 1-2 X DAILY (FROM 10 YEARS)
     Route: 065
  2. IBUPROFEN [Suspect]
     Active Substance: IBUPROFEN
     Indication: Lymphoproliferative disorder
  3. IBUPROFEN [Suspect]
     Active Substance: IBUPROFEN
     Indication: Autoinflammatory disease
  4. IBUPROFEN [Suspect]
     Active Substance: IBUPROFEN
     Indication: Autoimmune haemolytic anaemia
  5. PANTOPRAZOLE [Suspect]
     Active Substance: PANTOPRAZOLE
     Indication: Autoimmune haemolytic anaemia
     Dosage: 0.3-2.5 MG/KG/DAY
     Route: 065
  6. PANTOPRAZOLE [Suspect]
     Active Substance: PANTOPRAZOLE
     Indication: Autoinflammatory disease
  7. PANTOPRAZOLE [Suspect]
     Active Substance: PANTOPRAZOLE
     Indication: Prophylaxis against transplant rejection
  8. PANTOPRAZOLE [Suspect]
     Active Substance: PANTOPRAZOLE
     Indication: Lymphoproliferative disorder
  9. ANAKINRA [Suspect]
     Active Substance: ANAKINRA
     Indication: Autoinflammatory disease
     Dosage: UNK (FROM 9 YEARS)
     Route: 065
  10. ANAKINRA [Suspect]
     Active Substance: ANAKINRA
     Indication: Lymphoproliferative disorder
  11. ANAKINRA [Suspect]
     Active Substance: ANAKINRA
     Indication: Prophylaxis against transplant rejection
  12. ANAKINRA [Suspect]
     Active Substance: ANAKINRA
     Indication: Autoimmune haemolytic anaemia
  13. AZATHIOPRINE [Suspect]
     Active Substance: AZATHIOPRINE
     Indication: Autoimmune haemolytic anaemia
     Dosage: UNK
     Route: 065
  14. AZATHIOPRINE [Suspect]
     Active Substance: AZATHIOPRINE
     Indication: Lymphoproliferative disorder
  15. AZATHIOPRINE [Suspect]
     Active Substance: AZATHIOPRINE
     Indication: Prophylaxis against transplant rejection
  16. AZATHIOPRINE [Suspect]
     Active Substance: AZATHIOPRINE
     Indication: Autoinflammatory disease
  17. CYCLOSPORINE [Suspect]
     Active Substance: CYCLOSPORINE
     Indication: Prophylaxis against transplant rejection
     Dosage: UNK
     Route: 065
  18. CYCLOSPORINE [Suspect]
     Active Substance: CYCLOSPORINE
     Indication: Autoimmune haemolytic anaemia
  19. CYCLOSPORINE [Suspect]
     Active Substance: CYCLOSPORINE
     Indication: Lymphoproliferative disorder
  20. CYCLOSPORINE [Suspect]
     Active Substance: CYCLOSPORINE
     Indication: Autoinflammatory disease
  21. DOMPERIDONE [Suspect]
     Active Substance: DOMPERIDONE
     Indication: Autoimmune haemolytic anaemia
     Dosage: 0.3-2.5 MG/KG/DAY
     Route: 065
  22. DOMPERIDONE [Suspect]
     Active Substance: DOMPERIDONE
     Indication: Autoinflammatory disease
  23. DOMPERIDONE [Suspect]
     Active Substance: DOMPERIDONE
     Indication: Prophylaxis against transplant rejection
  24. DOMPERIDONE [Suspect]
     Active Substance: DOMPERIDONE
     Indication: Lymphoproliferative disorder
  25. METHOTREXATE [Suspect]
     Active Substance: METHOTREXATE
     Indication: Lymphoproliferative disorder
     Dosage: 15 MILLIGRAM, EVERY WEEK (FROM 10 YEARS)
     Route: 058
  26. METHOTREXATE [Suspect]
     Active Substance: METHOTREXATE
     Indication: Prophylaxis against transplant rejection
  27. METHOTREXATE [Suspect]
     Active Substance: METHOTREXATE
     Indication: Autoimmune haemolytic anaemia
  28. METHOTREXATE [Suspect]
     Active Substance: METHOTREXATE
     Indication: Autoinflammatory disease
  29. METHYLPREDNISOLONE [Suspect]
     Active Substance: METHYLPREDNISOLONE
     Indication: Autoinflammatory disease
     Dosage: UNK
     Route: 065
  30. METHYLPREDNISOLONE [Suspect]
     Active Substance: METHYLPREDNISOLONE
     Indication: Lymphoproliferative disorder
  31. METHYLPREDNISOLONE [Suspect]
     Active Substance: METHYLPREDNISOLONE
     Indication: Autoimmune haemolytic anaemia
  32. METHYLPREDNISOLONE [Suspect]
     Active Substance: METHYLPREDNISOLONE
     Indication: Prophylaxis against transplant rejection
  33. RITUXIMAB [Suspect]
     Active Substance: RITUXIMAB
     Indication: Lymphoproliferative disorder
     Dosage: 375 MILLIGRAM/SQ. METER, FOUR TIMES/DAY
     Route: 042
  34. RITUXIMAB [Suspect]
     Active Substance: RITUXIMAB
     Indication: Autoimmune haemolytic anaemia
  35. RITUXIMAB [Suspect]
     Active Substance: RITUXIMAB
     Indication: Autoinflammatory disease
  36. RITUXIMAB [Suspect]
     Active Substance: RITUXIMAB
     Indication: Prophylaxis against transplant rejection
  37. SIROLIMUS [Suspect]
     Active Substance: SIROLIMUS
     Indication: Lymphoproliferative disorder
     Dosage: UNK
     Route: 065
  38. SIROLIMUS [Suspect]
     Active Substance: SIROLIMUS
     Indication: Autoinflammatory disease
  39. SIROLIMUS [Suspect]
     Active Substance: SIROLIMUS
     Indication: Autoimmune haemolytic anaemia
  40. SIROLIMUS [Suspect]
     Active Substance: SIROLIMUS
     Indication: Prophylaxis against transplant rejection
  41. CALCIUM [Concomitant]
     Active Substance: CALCIUM
     Indication: Product used for unknown indication
     Dosage: UNK
     Route: 065
  42. ZOLEDRONIC ACID [Concomitant]
     Active Substance: ZOLEDRONIC ACID
     Indication: Product used for unknown indication
     Dosage: UNK
     Route: 065

REACTIONS (6)
  - Cytomegalovirus infection reactivation [Unknown]
  - Gastroenteritis salmonella [Unknown]
  - Epstein-Barr virus infection [Unknown]
  - Adenovirus infection [Unknown]
  - Upper respiratory tract infection [Unknown]
  - Herpes zoster [Unknown]
